FAERS Safety Report 24990066 (Version 1)
Quarter: 2025Q1

REPORT INFORMATION
  Report Type: Spontaneous
  Country: US (occurrence: US)
  Receive Date: 20250220
  Receipt Date: 20250220
  Transmission Date: 20250408
  Serious: Yes (Hospitalization, Other)
  Sender: COOPERSURGICAL
  Company Number: US-COOPERSURGICAL, INC.-2025CPS000985

PATIENT
  Sex: Female
  Weight: 81.633 kg

DRUGS (1)
  1. PARAGARD T 380A [Suspect]
     Active Substance: COPPER
     Route: 015
     Dates: start: 20150101

REACTIONS (10)
  - Injury [Unknown]
  - Complication of pregnancy [Recovered/Resolved]
  - Uterine injury [Unknown]
  - Reproductive complication associated with device [Unknown]
  - Device breakage [Recovered/Resolved]
  - Foreign body in reproductive tract [Recovered/Resolved]
  - Complication of device removal [Recovered/Resolved]
  - Sepsis [Recovered/Resolved]
  - Emotional disorder [Unknown]
  - Uterine pain [Unknown]

NARRATIVE: CASE EVENT DATE: 20160101
